FAERS Safety Report 21596012 (Version 4)
Quarter: 2024Q4

REPORT INFORMATION
  Report Type: Report from Study
  Country: DE (occurrence: DE)
  Receive Date: 20221115
  Receipt Date: 20241001
  Transmission Date: 20250115
  Serious: Yes (Death, Hospitalization, Other)
  Sender: NOVARTIS
  Company Number: DE-002147023-NVSC2022DE256401

PATIENT
  Age: 87 Year
  Sex: Female
  Weight: 87 kg

DRUGS (4)
  1. KISQALI [Suspect]
     Active Substance: RIBOCICLIB
     Indication: Hormone receptor positive HER2 negative breast cancer
     Dosage: 600 MG, QD (SCHEMA 21 DAYS INTAKE, 7 DAYS PAUSE)
     Route: 048
     Dates: start: 20210129, end: 20221003
  2. FULVESTRANT [Suspect]
     Active Substance: FULVESTRANT
     Indication: Breast cancer metastatic
     Dosage: 500 MG, QD (EVERY 4 WEEKS)
     Route: 030
     Dates: start: 20210129, end: 20220922
  3. FULVESTRANT [Suspect]
     Active Substance: FULVESTRANT
     Dosage: 500 MG, QD (EVERY 4 WEEKS)
     Route: 030
     Dates: start: 20221017, end: 20221027
  4. FULVESTRANT [Suspect]
     Active Substance: FULVESTRANT
     Dosage: UNK
     Route: 065
     Dates: start: 20221027

REACTIONS (10)
  - Pulmonary embolism [Fatal]
  - General physical health deterioration [Fatal]
  - Fall [Fatal]
  - Pyrexia [Fatal]
  - Neutropenia [Fatal]
  - White blood cell count decreased [Fatal]
  - Platelet count decreased [Fatal]
  - Haemoglobin decreased [Fatal]
  - Hormone receptor positive HER2 negative breast cancer [Fatal]
  - Malignant neoplasm progression [Fatal]

NARRATIVE: CASE EVENT DATE: 20221103
